FAERS Safety Report 10133660 (Version 2)
Quarter: 2014Q2

REPORT INFORMATION
  Report Type: Spontaneous
  Country: US (occurrence: US)
  Receive Date: 20140428
  Receipt Date: 20140605
  Transmission Date: 20141212
  Serious: Yes (Other)
  Sender: FDA-Public Use
  Company Number: US-TEVA-477900USA

PATIENT
  Age: 32 Year
  Sex: Female
  Weight: 81.72 kg

DRUGS (2)
  1. PARAGARD 380A [Suspect]
     Indication: CONTRACEPTION
     Route: 015
     Dates: start: 20140422, end: 20140422
  2. PARAGARD 380A [Suspect]
     Route: 015
     Dates: start: 20140429

REACTIONS (5)
  - Device dislocation [Recovered/Resolved]
  - Uterine perforation [Recovered/Resolved]
  - Pelvic pain [Unknown]
  - Abdominal pain [Unknown]
  - Discomfort [Unknown]
